FAERS Safety Report 10230715 (Version 2)
Quarter: 2015Q1

REPORT INFORMATION
  Report Type: Spontaneous
  Country: US (occurrence: US)
  Receive Date: 20140611
  Receipt Date: 20150203
  Transmission Date: 20150720
  Serious: No
  Sender: FDA-Public Use
  Company Number: US-PFIZER INC-2014155703

PATIENT
  Age: 37 Year
  Sex: Female
  Weight: 63.49 kg

DRUGS (11)
  1. SPIRONOLACTONE. [Suspect]
     Active Substance: SPIRONOLACTONE
     Dosage: UNK
     Dates: start: 20140410, end: 201405
  2. FLUTAMIDE. [Concomitant]
     Active Substance: FLUTAMIDE
     Dosage: UNK
     Dates: start: 20140409
  3. KORLYM [Suspect]
     Active Substance: MIFEPRISTONE
     Dosage: 1200 MG, 1X/DAY
     Route: 048
     Dates: start: 20140427, end: 2014
  4. KORLYM [Suspect]
     Active Substance: MIFEPRISTONE
     Dosage: 300 MG, DAILY
     Dates: start: 201409, end: 201410
  5. KORLYM [Suspect]
     Active Substance: MIFEPRISTONE
     Indication: BLOOD CORTISOL INCREASED
     Dosage: 300 MG, ALTERNATE DAY
     Route: 048
     Dates: start: 2013, end: 2013
  6. KORLYM [Suspect]
     Active Substance: MIFEPRISTONE
     Indication: CUSHING^S SYNDROME
     Dosage: 300 MG, 1X/DAY
     Route: 048
     Dates: start: 201306, end: 20130624
  7. MULTIVITAMINS [Concomitant]
     Active Substance: VITAMINS
     Dosage: UNK
  8. KORLYM [Suspect]
     Active Substance: MIFEPRISTONE
     Dosage: 1500 MG, 1X/DAY
     Route: 048
     Dates: end: 201404
  9. KORLYM [Suspect]
     Active Substance: MIFEPRISTONE
     Dosage: 300 MG, 1X/DAY
     Route: 048
     Dates: start: 20140427
  10. EPLERENONE. [Suspect]
     Active Substance: EPLERENONE
     Dosage: UNK
     Dates: start: 201405, end: 2014
  11. KORLYM [Suspect]
     Active Substance: MIFEPRISTONE
     Dosage: 1200 MG, 1X/DAY
     Route: 048
     Dates: start: 2014

REACTIONS (23)
  - Urticaria [Recovered/Resolved]
  - Blood cortisol increased [Unknown]
  - Irritability [Unknown]
  - Weight increased [Recovering/Resolving]
  - Menstruation irregular [Unknown]
  - Rash [Not Recovered/Not Resolved]
  - Constipation [Unknown]
  - Contusion [Unknown]
  - Pollakiuria [Unknown]
  - Weight decreased [Unknown]
  - Insomnia [Unknown]
  - Restlessness [Unknown]
  - Drug ineffective [Unknown]
  - Fatigue [Unknown]
  - Skin ulcer [Unknown]
  - Hirsutism [Unknown]
  - Vaginal haemorrhage [Unknown]
  - Muscular weakness [Unknown]
  - Nausea [Unknown]
  - Alopecia [Recovering/Resolving]
  - Skin atrophy [Unknown]
  - Drug hypersensitivity [Unknown]
  - Thirst [Unknown]

NARRATIVE: CASE EVENT DATE: 201306
